FAERS Safety Report 7830625-2 (Version None)
Quarter: 2011Q4

REPORT INFORMATION
  Report Type: 
  Country: None (occurrence: None)
  Receive Date: 20111021
  Receipt Date: 20111018
  Transmission Date: 20120403
  Serious: Yes (Hospitalization, Other)
  Sender: FDA-Public Use
  Company Number: JP-ABBOTT-11P-087-0865894-00

PATIENT
  Sex: Male

DRUGS (7)
  1. HUMIRA [Suspect]
     Dates: start: 20110930
  2. METHOTREXATE [Concomitant]
     Indication: PRODUCT USED FOR UNKNOWN INDICATION
     Route: 048
  3. ISONIAZID [Concomitant]
     Indication: PRODUCT USED FOR UNKNOWN INDICATION
     Route: 048
  4. REBAMIPIDE [Concomitant]
     Indication: PRODUCT USED FOR UNKNOWN INDICATION
     Route: 048
  5. FOLIC ACID [Concomitant]
     Indication: PRODUCT USED FOR UNKNOWN INDICATION
     Route: 048
  6. PREDNISOLONE [Concomitant]
     Indication: PRODUCT USED FOR UNKNOWN INDICATION
     Route: 048
  7. HUMIRA [Suspect]
     Indication: RHEUMATOID ARTHRITIS
     Route: 058
     Dates: start: 20110902, end: 20110902

REACTIONS (5)
  - PHARYNGEAL INFLAMMATION [None]
  - OROPHARYNGEAL DISCOMFORT [None]
  - PURULENT DISCHARGE [None]
  - JOINT SWELLING [None]
  - RHEUMATOID ARTHRITIS [None]
